FAERS Safety Report 16453482 (Version 2)
Quarter: 2021Q1

REPORT INFORMATION
  Report Type: Spontaneous
  Country: US (occurrence: US)
  Receive Date: 20190619
  Receipt Date: 20210310
  Transmission Date: 20210419
  Serious: No
  Sender: FDA-Public Use
  Company Number: US-SA-2019SA164035

PATIENT
  Age: 71 Year
  Sex: Female

DRUGS (3)
  1. FABRAZYME [Suspect]
     Active Substance: AGALSIDASE BETA
     Dosage: 15 MG, QOW
     Route: 042
     Dates: start: 20170810
  2. FABRAZYME [Suspect]
     Active Substance: AGALSIDASE BETA
     Dosage: 85 MG, QOW
     Route: 041
     Dates: start: 20190520
  3. FABRAZYME [Suspect]
     Active Substance: AGALSIDASE BETA
     Indication: FABRY^S DISEASE
     Dosage: 85 MG, QOW
     Route: 041
     Dates: start: 20130328

REACTIONS (1)
  - Illness [Unknown]

NARRATIVE: CASE EVENT DATE: 201905
